FAERS Safety Report 7954518-5 (Version None)
Quarter: 2011Q4

REPORT INFORMATION
  Report Type: 
  Country: None (occurrence: None)
  Receive Date: 20111202
  Receipt Date: 20111128
  Transmission Date: 20120403
  Serious: Yes (Other)
  Sender: FDA-Public Use
  Company Number: PHHY2011AT100509

PATIENT
  Age: 67 Year
  Sex: Female
  Weight: 88 kg

DRUGS (1)
  1. ZOLEDRONOC ACID [Suspect]
     Dosage: UNK
     Route: 042
     Dates: start: 20110915, end: 20110915

REACTIONS (6)
  - NAUSEA [None]
  - BONE PAIN [None]
  - DIARRHOEA [None]
  - CIRCULATORY COLLAPSE [None]
  - VERTIGO [None]
  - MUSCULOSKELETAL CHEST PAIN [None]
